FAERS Safety Report 17395060 (Version 1)
Quarter: 2020Q1

REPORT INFORMATION
  Report Type: Spontaneous
  Country: CA (occurrence: CA)
  Receive Date: 20200210
  Receipt Date: 20200210
  Transmission Date: 20200409
  Serious: Yes (Other)
  Sender: FDA-Public Use
  Company Number: CA-AUROBINDO-AUR-APL-2020-005505

PATIENT
  Age: 20 Month
  Sex: Male
  Weight: 11 kg

DRUGS (3)
  1. CHILDRENS ADVIL [Suspect]
     Active Substance: IBUPROFEN
     Indication: PYREXIA
     Dosage: 1 DOSAGE FORM, ONCE A DAY
     Route: 065
  2. CHILDRENS ADVIL [Suspect]
     Active Substance: IBUPROFEN
     Indication: TEETHING
  3. TOPIRAMATE. [Suspect]
     Active Substance: TOPIRAMATE
     Indication: PRODUCT USED FOR UNKNOWN INDICATION
     Dosage: 75 MILLIGRAM, TWO TIMES A DAY
     Route: 063

REACTIONS (8)
  - Discomfort [Recovered/Resolved]
  - Poor feeding infant [Recovered/Resolved]
  - Restlessness [Recovered/Resolved]
  - Exposure via breast milk [Recovered/Resolved]
  - Screaming [Recovered/Resolved]
  - Reaction to excipient [Recovered/Resolved]
  - Initial insomnia [Recovered/Resolved]
  - Middle insomnia [Recovered/Resolved]
